FAERS Safety Report 8154277-X (Version None)
Quarter: 2012Q1

REPORT INFORMATION
  Report Type: 
  Country: None (occurrence: None)
  Receive Date: 20120221
  Receipt Date: 20120207
  Transmission Date: 20120608
  Serious: Yes (Death, Hospitalization, Disabling, Other)
  Sender: FDA-Public Use
  Company Number: JP-ACTELION-A-CH2010-38763

PATIENT
  Sex: Male
  Weight: 70 kg

DRUGS (19)
  1. TRACLEER [Suspect]
     Dosage: 93.75 MG, BID
     Route: 048
     Dates: start: 20100123, end: 20100226
  2. TRACLEER [Suspect]
     Dosage: 125 MG, BID
     Route: 048
     Dates: start: 20100724, end: 20100831
  3. WARFARIN SODIUM [Suspect]
     Indication: SHUNT OCCLUSION
     Dosage: UNK
     Dates: start: 20091212, end: 20091218
  4. ZOPICLONE [Concomitant]
  5. TRACLEER [Suspect]
     Dosage: 93.75 MG, BID
     Route: 048
     Dates: start: 20100710, end: 20100723
  6. BROTIZOLAM [Concomitant]
  7. POLAPREZINC [Concomitant]
  8. DARBEPOETIN ALFA [Concomitant]
  9. TRACLEER [Suspect]
     Dosage: 62.5 MG, BID
     Route: 048
     Dates: start: 20100626, end: 20100709
  10. WARFARIN SODIUM [Suspect]
     Dosage: UNK
     Dates: start: 20100213, end: 20100712
  11. TICLOPIDINE HYDROCHLORIDE [Concomitant]
  12. DROXIDOPA [Concomitant]
  13. ASPIRIN [Concomitant]
  14. TRACLEER [Suspect]
     Indication: PULMONARY ARTERIAL HYPERTENSION
     Dosage: 62.5 MG, BID
     Route: 048
     Dates: start: 20091212, end: 20100122
  15. FAMOTIDINE [Concomitant]
  16. TRACLEER [Suspect]
     Dosage: 125 MG, BID
     Route: 048
     Dates: start: 20100227, end: 20100319
  17. BERAPROST SODIUM [Concomitant]
  18. ALLOPURINOL [Concomitant]
  19. WARFARIN SODIUM [Suspect]
     Dosage: UNK
     Dates: start: 20091219, end: 20100212

REACTIONS (22)
  - CARDIAC OUTPUT DECREASED [None]
  - DIZZINESS [None]
  - DRUG EFFECT DECREASED [None]
  - PULMONARY HYPERTENSION [None]
  - HORDEOLUM [None]
  - LOSS OF CONSCIOUSNESS [None]
  - SUTURE INSERTION [None]
  - PRODUCTIVE COUGH [None]
  - CENTRAL VENOUS CATHETERISATION [None]
  - SKIN ULCER [None]
  - HAEMORRHOIDAL HAEMORRHAGE [None]
  - STAPHYLOCOCCAL SEPSIS [None]
  - GANGRENE [None]
  - PENILE PAIN [None]
  - PYREXIA [None]
  - BRONCHITIS [None]
  - HAEMORRHAGE [None]
  - BLOOD PRESSURE SYSTOLIC DECREASED [None]
  - FALL [None]
  - FACE INJURY [None]
  - INTERNATIONAL NORMALISED RATIO INCREASED [None]
  - CATHETER REMOVAL [None]
